FAERS Safety Report 7129649-2 (Version None)
Quarter: 2010Q4

REPORT INFORMATION
  Report Type: 
  Country: None (occurrence: None)
  Receive Date: 20101130
  Receipt Date: 20101123
  Transmission Date: 20110411
  Serious: Yes (Life-Threatening)
  Sender: FDA-Public Use
  Company Number: JP-ABBOTT-10P-087-0661835-00

PATIENT
  Sex: Female
  Weight: 52 kg

DRUGS (9)
  1. CEFZON [Suspect]
     Indication: HORDEOLUM
     Route: 048
     Dates: start: 20100721, end: 20100724
  2. EMPYNASE [Suspect]
     Indication: NECK PAIN
     Route: 048
     Dates: start: 20100721, end: 20100724
  3. PABRON S [Suspect]
     Indication: NECK PAIN
     Dosage: UID/QD
     Route: 048
     Dates: start: 20100725, end: 20100725
  4. LANDEL [Concomitant]
     Indication: PRODUCT USED FOR UNKNOWN INDICATION
  5. TENORMIN [Concomitant]
     Indication: PRODUCT USED FOR UNKNOWN INDICATION
  6. SIMVASTATIN [Concomitant]
     Indication: PRODUCT USED FOR UNKNOWN INDICATION
  7. ALLELOCK [Concomitant]
     Indication: PRODUCT USED FOR UNKNOWN INDICATION
     Dates: start: 20100725, end: 20100726
  8. RESTAMIN [Concomitant]
     Indication: PRODUCT USED FOR UNKNOWN INDICATION
     Dates: start: 20100725, end: 20100726
  9. CLARITHROMYCIN [Concomitant]
     Indication: PRODUCT USED FOR UNKNOWN INDICATION
     Dates: start: 20100725, end: 20100726

REACTIONS (2)
  - DISSEMINATED INTRAVASCULAR COAGULATION [None]
  - TOXIC SKIN ERUPTION [None]
